FAERS Safety Report 9910815 (Version 1)
Quarter: 2014Q1

REPORT INFORMATION
  Report Type: Spontaneous
  Country: CA (occurrence: CA)
  Receive Date: 20140219
  Receipt Date: 20140219
  Transmission Date: 20141002
  Serious: Yes (Hospitalization, Other)
  Sender: FDA-Public Use
  Company Number: CA-ACTAVIS-2014-02605

PATIENT
  Age: 34 Year
  Sex: Female

DRUGS (5)
  1. OLANZAPINE (UNKNOWN) [Suspect]
     Indication: SCHIZOPHRENIA
     Dosage: 10 MG, QPM
     Route: 065
     Dates: start: 1997
  2. OLANZAPINE (UNKNOWN) [Suspect]
     Dosage: 30 MG, QPM
     Route: 065
     Dates: start: 1997
  3. OLANZAPINE (UNKNOWN) [Suspect]
     Dosage: 5 MG, QPM
     Route: 065
     Dates: start: 1997
  4. FLUOXETINE (UNKNOWN) [Suspect]
     Indication: SCHIZOPHRENIA
     Dosage: 60 MG, DAILY
     Route: 065
     Dates: start: 1992
  5. FLUOXETINE (UNKNOWN) [Suspect]
     Dosage: 20 MG, DAILY
     Route: 065
     Dates: start: 1992

REACTIONS (1)
  - Mania [Recovered/Resolved]
